FAERS Safety Report 4933058-1 (Version None)
Quarter: 2006Q1

REPORT INFORMATION
  Report Type: 
  Country: None (occurrence: None)
  Receive Date: 20060306
  Receipt Date: 20060223
  Transmission Date: 20060701
  Serious: Yes (Disabling)
  Sender: FDA-Public Use
  Company Number: PHRM2006FR00900

PATIENT
  Age: 51 Year
  Sex: Female

DRUGS (3)
  1. ARIMIDEX [Concomitant]
  2. ANAESTHETICS, LOCAL [Concomitant]
     Indication: TOOTH EXTRACTION
     Dates: start: 20050401, end: 20050401
  3. ZOMETA [Suspect]
     Indication: METASTASES TO BONE
     Route: 042
     Dates: start: 20040105, end: 20051014

REACTIONS (9)
  - BONE DENSITY DECREASED [None]
  - BONE DISORDER [None]
  - BONE FISTULA [None]
  - GINGIVAL INFECTION [None]
  - IMPAIRED HEALING [None]
  - OSTEOLYSIS [None]
  - OSTEONECROSIS [None]
  - PAIN IN JAW [None]
  - TOOTH EXTRACTION [None]
